FAERS Safety Report 21536224 (Version 3)
Quarter: 2022Q4

REPORT INFORMATION
  Report Type: Spontaneous
  Country: IN (occurrence: IN)
  Receive Date: 20221101
  Receipt Date: 20221114
  Transmission Date: 20230113
  Serious: Yes (Hospitalization, Other)
  Sender: FDA-Public Use
  Company Number: IN-PFIZER INC-202101128671

PATIENT
  Age: 64 Year
  Sex: Female
  Weight: 65 kg

DRUGS (8)
  1. PALBOCICLIB [Suspect]
     Active Substance: PALBOCICLIB
     Indication: Breast cancer
     Dosage: 125 MG, 1X/DAY (OD)
     Route: 048
     Dates: start: 20210304
  2. FULVESTRANT [Concomitant]
     Active Substance: FULVESTRANT
     Indication: Breast cancer
     Dosage: 500 MG, MONTHLY
     Route: 030
  3. RECLIDE [Concomitant]
     Indication: Diabetes mellitus
     Dosage: 30 MG(1-0-0 BEFORE FOOD, 10 YEARS)
  4. ROZAT [Concomitant]
     Indication: Cardiac disorder
     Dosage: 20 MG(0-0-1 AFTER FOOD, LAST 2 YEARS)
  5. ASPIRIN\CLOPIDOGREL BISULFATE [Concomitant]
     Active Substance: ASPIRIN\CLOPIDOGREL BISULFATE
     Indication: Cardiac disorder
     Dosage: 75 MG(0-1-0 AFTER FOOD, LAST 2 YEARS)
  6. SPIRONOLACTONE\TORSEMIDE [Concomitant]
     Active Substance: SPIRONOLACTONE\TORSEMIDE
     Indication: Cardiac disorder
     Dosage: 5 MG(1-0-0 AFTER FOOD, LASTED 2 YEARS)
  7. LEVOTHYROXINE [Concomitant]
     Active Substance: LEVOTHYROXINE
     Dosage: 0.1 MG
  8. MORPHINE SULFATE [Concomitant]
     Active Substance: MORPHINE SULFATE
     Dosage: UNK

REACTIONS (14)
  - Acute kidney injury [Unknown]
  - Chronic kidney disease [Unknown]
  - Urosepsis [Unknown]
  - Pancreatitis acute [Unknown]
  - Oesophageal candidiasis [Unknown]
  - Anaemia [Unknown]
  - Hypercalcaemia [Unknown]
  - Left ventricular dysfunction [Unknown]
  - Vomiting [Unknown]
  - Fatigue [Unknown]
  - Pyrexia [Unknown]
  - Escherichia urinary tract infection [Unknown]
  - Abdominal pain upper [Unknown]
  - Lipase increased [Unknown]
